FAERS Safety Report 4355545-X (Version None)
Quarter: 2004Q2

REPORT INFORMATION
  Report Type: 
  Country: None (occurrence: None)
  Receive Date: 20040505
  Receipt Date: 20030407
  Transmission Date: 20050107
  Serious: No
  Sender: FDA-Public Use
  Company Number: 10037483-NA01-1

PATIENT
  Age: 21 Year
  Sex: Female
  Weight: 80.2 kg

DRUGS (4)
  1. ARB2323 LACTATED RINGERS INJ [Suspect]
     Indication: FLUID REPLACEMENT
     Dosage: 1000ML, CONTINUOUS, INTRAVENOUS
     Route: 042
     Dates: start: 20030212
  2. ARB2323 LACTATED RINGERS INJ [Suspect]
     Indication: PREOPERATIVE CARE
     Dosage: 1000ML, CONTINUOUS, INTRAVENOUS
     Route: 042
     Dates: start: 20030212
  3. DEXTROSE [Concomitant]
  4. OXYTOCIN [Concomitant]

REACTIONS (3)
  - PRURITUS [None]
  - RASH PAPULAR [None]
  - URTICARIA [None]
